FAERS Safety Report 9632613 (Version 1)
Quarter: 2013Q4

REPORT INFORMATION
  Report Type: Report from Study
  Country: US (occurrence: US)
  Receive Date: 20131018
  Receipt Date: 20131018
  Transmission Date: 20140711
  Serious: Yes (Hospitalization)
  Sender: FDA-Public Use
  Company Number: US-GLAXOSMITHKLINE-A1044469A

PATIENT
  Age: 35 Year
  Sex: Female
  Weight: 52 kg

DRUGS (3)
  1. PAZOPANIB [Suspect]
     Indication: THYROID CANCER
     Dosage: 800MG PER DAY
     Route: 048
     Dates: start: 20130909
  2. TRAMETINIB [Suspect]
     Indication: THYROID CANCER
     Dosage: 2MG PER DAY
     Route: 048
  3. DIFLUCAN [Concomitant]
     Indication: FUNGAL INFECTION

REACTIONS (1)
  - Cardiac failure congestive [Not Recovered/Not Resolved]
